FAERS Safety Report 7338676 (Version 2)
Quarter: 2016Q3

REPORT INFORMATION
  Report Type: Spontaneous
  Country: DE (occurrence: DE)
  Receive Date: 20100331
  Receipt Date: 20160808
  Transmission Date: 20161109
  Serious: Yes (Other)
  Sender: FDA-Public Use
  Company Number: DE-ASTRAZENECA-2010SE12647

PATIENT
  Age: 75 Year
  Sex: Male

DRUGS (10)
  1. CATECHOLAMINES [Concomitant]
     Active Substance: UNSPECIFIED INGREDIENT
  2. ESOMEPRAZOLE [Suspect]
     Active Substance: ESOMEPRAZOLE
     Indication: PROPHYLAXIS AGAINST GASTROINTESTINAL ULCER
     Dosage: 40-80 MG/DAY
     Route: 042
  3. LINEZOLID. [Concomitant]
     Active Substance: LINEZOLID
  4. HEPARIN [Concomitant]
     Active Substance: HEPARIN SODIUM
     Dosage: 800 IU/H
  5. INSULIN [Concomitant]
     Active Substance: INSULIN NOS
  6. MEROPENEM. [Concomitant]
     Active Substance: MEROPENEM
  7. PROPOFOL. [Concomitant]
     Active Substance: PROPOFOL
     Indication: SEDATION
  8. FUROSEMIDE. [Concomitant]
     Active Substance: FUROSEMIDE
     Dosage: 40-120 MG/DAY
  9. AMIODARONE [Concomitant]
     Active Substance: AMIODARONE
  10. SUFENTANIL [Concomitant]
     Active Substance: SUFENTANIL
     Indication: SEDATION

REACTIONS (1)
  - Rhabdomyolysis [Recovering/Resolving]
